FAERS Safety Report 11286079 (Version 1)
Quarter: 2015Q3

REPORT INFORMATION
  Report Type: Spontaneous
  Country: US (occurrence: None)
  Receive Date: 20150717
  Receipt Date: 20150717
  Transmission Date: 20151125
  Serious: Yes (Hospitalization, Other)
  Sender: FDA-Public Use
  Company Number: None

PATIENT
  Age: 61 Year
  Sex: Male
  Weight: 98.7 kg

DRUGS (1)
  1. DABIGATRAN [Suspect]
     Active Substance: DABIGATRAN
     Indication: ATRIAL FIBRILLATION
     Route: 048
     Dates: start: 20130402, end: 20140128

REACTIONS (6)
  - Gastric haemorrhage [None]
  - Hypotension [None]
  - Dizziness [None]
  - Haemorrhage [None]
  - Vomiting [None]
  - Nausea [None]

NARRATIVE: CASE EVENT DATE: 20140128
